FAERS Safety Report 7889491-1 (Version None)
Quarter: 2011Q4

REPORT INFORMATION
  Report Type: 
  Country: None (occurrence: None)
  Receive Date: 20111103
  Receipt Date: 20111031
  Transmission Date: 20120403
  Serious: Yes (Other)
  Sender: FDA-Public Use
  Company Number: US-PFIZER INC-2011092949

PATIENT
  Sex: Male
  Weight: 99.773 kg

DRUGS (2)
  1. GEODON [Suspect]
     Dosage: 50 MG, 2X/DAY
     Route: 048
  2. ATENOLOL [Concomitant]
     Indication: HYPERTENSION
     Dosage: 50 MG, 1X/DAY
     Route: 048

REACTIONS (1)
  - AGGRESSION [None]
